FAERS Safety Report 17370550 (Version 1)
Quarter: 2020Q1

REPORT INFORMATION
  Report Type: Spontaneous
  Country: IT (occurrence: IT)
  Receive Date: 20200205
  Receipt Date: 20200205
  Transmission Date: 20200409
  Serious: Yes (Other)
  Sender: FDA-Public Use
  Company Number: IT-TEVA-2020-IT-1181064

PATIENT
  Age: 62 Year
  Sex: Male

DRUGS (4)
  1. AKYNZEO 300 MG / 0.5 MG HARD CAPSULES [Concomitant]
  2. BEVACIZUMAB. [Concomitant]
     Active Substance: BEVACIZUMAB
  3. OXALIPLATIN. [Suspect]
     Active Substance: OXALIPLATIN
     Indication: COLON CANCER
     Dosage: 130 MILLIGRAM
     Route: 042
     Dates: start: 20191008, end: 20191119
  4. CAPECITABINE. [Concomitant]
     Active Substance: CAPECITABINE

REACTIONS (1)
  - Asthmatic crisis [Recovered/Resolved]

NARRATIVE: CASE EVENT DATE: 20191119
